FAERS Safety Report 5823907-7 (Version None)
Quarter: 2008Q3

REPORT INFORMATION
  Report Type: 
  Country: None (occurrence: None)
  Receive Date: 20080724
  Receipt Date: 20080710
  Transmission Date: 20090109
  Serious: Yes (Hospitalization)
  Sender: FDA-Public Use
  Company Number: 14943

PATIENT
  Age: 53 Year
  Sex: Female
  Weight: 83.9154 kg

DRUGS (8)
  1. MORPHINE SULFATE [Suspect]
     Indication: FIBROMYALGIA
     Dosage: 60 MG TID ORALLY
     Route: 048
     Dates: start: 20070701, end: 20080613
  2. MORPHINE SULFATE [Suspect]
     Indication: MIGRAINE
     Dosage: 60 MG TID ORALLY
     Route: 048
     Dates: start: 20070701, end: 20080613
  3. EFFEXOR [Concomitant]
  4. HYDROCODONE BITARTRATE [Concomitant]
  5. TOPAMAX [Concomitant]
  6. IMITREX [Concomitant]
  7. WARFARIN SODIUM [Concomitant]
  8. COREG [Concomitant]

REACTIONS (4)
  - DEHYDRATION [None]
  - HYPOTENSION [None]
  - MIGRAINE [None]
  - PHARMACEUTICAL PRODUCT COMPLAINT [None]
